FAERS Safety Report 9000022 (Version 2)
Quarter: 2013Q1

REPORT INFORMATION
  Report Type: Spontaneous
  Country: US (occurrence: US)
  Receive Date: 20130102
  Receipt Date: 20130122
  Transmission Date: 20140127
  Serious: Yes (Hospitalization, Congenital Anomaly, Other)
  Sender: FDA-Public Use
  Company Number: US-PFIZER INC-2012328013

PATIENT
  Sex: Male

DRUGS (5)
  1. ZOLOFT [Suspect]
     Indication: DEPRESSION
     Dosage: UNK
     Route: 064
     Dates: start: 200408, end: 201106
  2. SERTRALINE HCL [Suspect]
     Indication: DEPRESSION
     Dosage: UNK
     Route: 064
     Dates: start: 200408, end: 201106
  3. PRENATAL VITAMINS [Concomitant]
     Dosage: UNK
     Route: 064
  4. ACYCLOVIR [Concomitant]
     Dosage: UNK
     Route: 064
  5. PAXIL [Concomitant]
     Dosage: UNK
     Route: 064

REACTIONS (12)
  - Maternal exposure timing unspecified [Unknown]
  - Congenital pulmonary hypertension [Unknown]
  - Pulmonary artery stenosis congenital [Unknown]
  - Auditory neuropathy spectrum disorder [Unknown]
  - Hydrops foetalis [Unknown]
  - Deafness [Unknown]
  - Atrial septal defect [Unknown]
  - Cleft palate [Unknown]
  - Skull malformation [Unknown]
  - Heart disease congenital [Unknown]
  - Congenital anomaly [Unknown]
  - Cryptorchism [Unknown]
